FAERS Safety Report 7369502-2 (Version None)
Quarter: 2011Q1

REPORT INFORMATION
  Report Type: 
  Country: None (occurrence: None)
  Receive Date: 20110323
  Receipt Date: 20110315
  Transmission Date: 20110831
  Serious: Yes (Other)
  Sender: FDA-Public Use
  Company Number: US-AMGEN-USASP2011014334

PATIENT
  Age: 65 Year
  Sex: Female

DRUGS (1)
  1. ENBREL [Suspect]
     Indication: RHEUMATOID ARTHRITIS
     Dates: start: 20100414

REACTIONS (6)
  - DYSPNOEA [None]
  - MUSCULOSKELETAL CHEST PAIN [None]
  - COUGH [None]
  - RHEUMATOID ARTHRITIS [None]
  - WEIGHT INCREASED [None]
  - CHILLS [None]
